FAERS Safety Report 4854096-3 (Version None)
Quarter: 2005Q4

REPORT INFORMATION
  Report Type: 
  Country: None (occurrence: None)
  Receive Date: 20051125
  Receipt Date: 20050816
  Transmission Date: 20060501
  Serious: Yes (Hospitalization)
  Sender: FDA-Public Use
  Company Number: US-JNJFOC-20050503733

PATIENT
  Age: 76 Year
  Sex: Male

DRUGS (11)
  1. LEVAQUIN [Suspect]
  2. GEMCITABINE (GEMCITABINE) [Concomitant]
  3. CARBOPLATIN [Concomitant]
  4. PACLITAXEL [Concomitant]
  5. TAMSULOSIN HYDROCHLORIDE (TAMSULOSIN HYDROCHLORIDE) [Concomitant]
  6. DOCUSATE SODIUM (DOCUSATE SODIUM) [Concomitant]
  7. MORPHINE [Concomitant]
  8. MULTIVITAMIN [Concomitant]
  9. OXYCODONE/ACETAMINOPHEN (OXYCOCET) [Concomitant]
  10. MEGACE [Concomitant]
  11. FLOMAX [Concomitant]

REACTIONS (2)
  - ABDOMINAL PAIN [None]
  - HEPATIC ENZYME INCREASED [None]
